FAERS Safety Report 23280580 (Version 1)
Quarter: 2023Q4

REPORT INFORMATION
  Report Type: Spontaneous
  Country: ZA (occurrence: ZA)
  Receive Date: 20231211
  Receipt Date: 20231211
  Transmission Date: 20240110
  Serious: Yes (Hospitalization)
  Sender: FDA-Public Use
  Company Number: ZA-LUPIN PHARMACEUTICALS INC.-2023-11011

PATIENT

DRUGS (6)
  1. AMLODIPINE BESYLATE [Suspect]
     Active Substance: AMLODIPINE BESYLATE
     Indication: Hypertension
     Dosage: 5 MG, QD (TAKE ONE TABLET A DAY)
     Route: 048
  2. ATENOLOL [Suspect]
     Active Substance: ATENOLOL
     Indication: Hypertension
     Dosage: 100 MG, QD (TAKE ONE TABLET DAILY)
     Route: 048
  3. ENALAPRIL MALEATE [Suspect]
     Active Substance: ENALAPRIL MALEATE
     Indication: Hypertension
     Dosage: 10 MG, QD (TAKE ONE TABLET DAILY)
     Route: 048
  4. GEMFIBROZIL [Suspect]
     Active Substance: GEMFIBROZIL
     Indication: Blood cholesterol abnormal
     Dosage: 10 MG, QD (TAKE ONE AT NIGHT)
     Route: 048
  5. ESOMEPRAZOLE MAGNESIUM [Suspect]
     Active Substance: ESOMEPRAZOLE\ESOMEPRAZOLE MAGNESIUM\ESOMEPRAZOLE MAGNESIUM DIHYDRATE
     Indication: Ulcer
     Dosage: 20 MG, BID (TAKE ONE TABLET TWICE A DAY)
     Route: 048
  6. ECOTRIN [Suspect]
     Active Substance: ASPIRIN
     Indication: Anticoagulant therapy
     Dosage: 81 MG, QD (TAKE A ONE TABLET DAILY)
     Route: 048

REACTIONS (4)
  - Gastrointestinal disorder [Unknown]
  - Dehydration [Unknown]
  - Renal disorder [Unknown]
  - Heart rate irregular [Unknown]
